FAERS Safety Report 5651541-0 (Version None)
Quarter: 2008Q1

REPORT INFORMATION
  Report Type: 
  Country: None (occurrence: None)
  Receive Date: 20080305
  Receipt Date: 20080222
  Transmission Date: 20080703
  Serious: Yes (Other)
  Sender: FDA-Public Use
  Company Number: BR-GILEAD-E2B_00000069

PATIENT
  Sex: Male

DRUGS (1)
  1. HEPSERA [Suspect]
     Indication: HEPATITIS B
     Dates: start: 20040101

REACTIONS (2)
  - RENAL FAILURE [None]
  - VIRAL LOAD INCREASED [None]
